FAERS Safety Report 7214371-4 (Version None)
Quarter: 2011Q1

REPORT INFORMATION
  Report Type: 
  Country: None (occurrence: None)
  Receive Date: 20110107
  Receipt Date: 20101226
  Transmission Date: 20110831
  Serious: No
  Sender: FDA-Public Use
  Company Number: US-B.I. PHARMACEUTICALS,INC./RIDGEFIELD-2011-BP-00122BP

PATIENT
  Sex: Female

DRUGS (5)
  1. PRILOSEC [Concomitant]
     Indication: GASTROINTESTINAL DISORDER
     Dosage: 80 MG
     Route: 048
     Dates: start: 20050101
  2. FLECKINIDE [Concomitant]
     Indication: CARDIAC DISORDER
     Route: 048
  3. PRADAXA [Suspect]
     Indication: ATRIAL FIBRILLATION
     Dosage: 300 MG
     Route: 048
     Dates: start: 20101223
  4. LOSARTAN POTASSIUM [Concomitant]
     Indication: HYPERTENSION
     Route: 048
  5. LABETALOL [Concomitant]
     Indication: HYPERTENSION
     Route: 048
     Dates: start: 20050101

REACTIONS (6)
  - OROPHARYNGEAL PAIN [None]
  - DYSPEPSIA [None]
  - ABDOMINAL PAIN UPPER [None]
  - HEADACHE [None]
  - DIARRHOEA [None]
  - GINGIVAL PAIN [None]
